FAERS Safety Report 7264890-X (Version None)
Quarter: 2011Q1

REPORT INFORMATION
  Report Type: 
  Country: None (occurrence: None)
  Receive Date: 20110131
  Receipt Date: 20101117
  Transmission Date: 20110831
  Serious: Yes (Hospitalization)
  Sender: FDA-Public Use
  Company Number: US-BAYER-201033311NA

PATIENT
  Sex: Female
  Weight: 95 kg

DRUGS (5)
  1. ACIPHEX [Concomitant]
     Dosage: 20 MG, UNK
  2. OCELLA [Suspect]
     Indication: ORAL CONTRACEPTION
     Dosage: UNK
     Dates: start: 20080801, end: 20100101
  3. YAZ [Suspect]
  4. YASMIN [Suspect]
     Indication: ORAL CONTRACEPTION
     Dosage: UNK
     Route: 048
     Dates: start: 20080401, end: 20080701
  5. ACIPHEX [Concomitant]
     Indication: GASTROOESOPHAGEAL REFLUX DISEASE
     Dosage: 1 TAB PER DAY
     Route: 048
     Dates: start: 20070101

REACTIONS (9)
  - DIZZINESS [None]
  - NAUSEA [None]
  - PULMONARY EMBOLISM [None]
  - INTRACRANIAL VENOUS SINUS THROMBOSIS [None]
  - COUGH [None]
  - OXYGEN SATURATION DECREASED [None]
  - DYSPNOEA [None]
  - VOMITING [None]
  - HEADACHE [None]
